FAERS Safety Report 7156712-2 (Version None)
Quarter: 2010Q4

REPORT INFORMATION
  Report Type: 
  Country: None (occurrence: None)
  Receive Date: 20101214
  Receipt Date: 20100119
  Transmission Date: 20110411
  Serious: No
  Sender: FDA-Public Use
  Company Number: US-ASTRAZENECA-2009SE29851

PATIENT
  Age: 63 Year
  Sex: Female
  Weight: 71.2 kg

DRUGS (7)
  1. CRESTOR [Suspect]
     Route: 048
     Dates: start: 20090501
  2. CRESTOR [Suspect]
     Route: 048
     Dates: start: 20100108
  3. SYNTHROID [Concomitant]
  4. VITAMIN E [Concomitant]
  5. M.V.I. [Concomitant]
  6. NAPROXEN [Concomitant]
  7. ESTROGEN CREAM [Concomitant]

REACTIONS (3)
  - ARTHRITIS [None]
  - PAIN [None]
  - PARAESTHESIA [None]
